FAERS Safety Report 8116286-6 (Version None)
Quarter: 2011Q4

REPORT INFORMATION
  Report Type: 
  Country: None (occurrence: None)
  Receive Date: 20111227
  Receipt Date: 20111031
  Transmission Date: 20120403
  Serious: No
  Sender: FDA-Public Use
  Company Number: PHEH2011US008621

PATIENT
  Age: 31 Year
  Sex: Female

DRUGS (3)
  1. PRISTIQ [Concomitant]
  2. TRAZODONE HCL [Concomitant]
  3. FTY 720 (FTY) CAPSULE, 0.5MG [Suspect]
     Indication: RELAPSING-REMITTING MULTIPLE SCLEROSIS
     Dosage: 0.5 MG, QOD, ORAL
     Route: 048
     Dates: start: 20110622

REACTIONS (5)
  - OEDEMA PERIPHERAL [None]
  - JOINT SWELLING [None]
  - SWELLING FACE [None]
  - SWELLING [None]
  - INAPPROPRIATE SCHEDULE OF DRUG ADMINISTRATION [None]
